FAERS Safety Report 19194811 (Version 1)
Quarter: 2021Q2

REPORT INFORMATION
  Report Type: Spontaneous
  Country: ES (occurrence: ES)
  Receive Date: 20210429
  Receipt Date: 20210429
  Transmission Date: 20210717
  Serious: Yes (Other)
  Sender: FDA-Public Use
  Company Number: ES-GLAXOSMITHKLINE-ES2021091199

PATIENT
  Age: 63 Year
  Sex: Male
  Weight: 107 kg

DRUGS (5)
  1. ALPHAGAN P [Concomitant]
     Active Substance: BRIMONIDINE TARTRATE
     Indication: PRODUCT USED FOR UNKNOWN INDICATION
     Dosage: 1 DF, BID(1 RIGHT EYE DROP EVERY 12 HOURS)
     Route: 065
     Dates: start: 20210319, end: 20210412
  2. ALPRAZOLAM CINFA [Concomitant]
     Indication: ANXIETY
     Dosage: UNK(1 WHEN LYING OCCASIONALLY WHEN ANXIETY PROBLEMS)
     Route: 065
     Dates: start: 20180201
  3. OZURDEX [Concomitant]
     Active Substance: DEXAMETHASONE
     Indication: EYE OEDEMA
     Dosage: UNK(ONE?TIME INTRAVIETRA INJECTION)
     Route: 065
     Dates: start: 20210218
  4. DICLOFENAC [Concomitant]
     Active Substance: DICLOFENAC
     Indication: PAIN
     Dosage: UNK(1 EVERY 8 HOURS, BUT DECREASED THE DOSE WHEN I HAD NO INFLAMMATION TO 1 A DAY)
     Route: 065
     Dates: start: 20210101
  5. DUODART [Suspect]
     Active Substance: DUTASTERIDE\TAMSULOSIN
     Indication: BENIGN PROSTATIC HYPERPLASIA
     Dosage: 1 DF, QD(1 EVERY NIGHT)
     Route: 048
     Dates: start: 20210401, end: 20210403

REACTIONS (3)
  - Visual impairment [Recovered/Resolved]
  - Headache [Recovered/Resolved]
  - Vertigo [Recovered/Resolved]

NARRATIVE: CASE EVENT DATE: 20210401
